FAERS Safety Report 10329254 (Version 12)
Quarter: 2017Q2

REPORT INFORMATION
  Report Type: Report from Study
  Country: US (occurrence: US)
  Receive Date: 20140721
  Receipt Date: 20170501
  Transmission Date: 20170829
  Serious: Yes (Other)
  Sender: FDA-Public Use
  Company Number: US-SA-2014SA023765

PATIENT
  Age: 60 Year
  Sex: Female

DRUGS (12)
  1. AUBAGIO [Suspect]
     Active Substance: TERIFLUNOMIDE
     Indication: MULTIPLE SCLEROSIS
     Route: 048
     Dates: start: 2013
  2. AUBAGIO [Suspect]
     Active Substance: TERIFLUNOMIDE
     Indication: MULTIPLE SCLEROSIS
     Route: 048
     Dates: start: 20140320
  3. CALCIUM [Concomitant]
     Active Substance: CALCIUM
  4. MAG-OX [Concomitant]
     Active Substance: MAGNESIUM OXIDE
  5. AUBAGIO [Suspect]
     Active Substance: TERIFLUNOMIDE
     Indication: MULTIPLE SCLEROSIS
     Route: 048
     Dates: start: 2013
  6. VITAMIN D [Concomitant]
     Active Substance: CHOLECALCIFEROL
  7. AUBAGIO [Suspect]
     Active Substance: TERIFLUNOMIDE
     Indication: MULTIPLE SCLEROSIS
     Route: 048
     Dates: start: 20140320
  8. AUBAGIO [Suspect]
     Active Substance: TERIFLUNOMIDE
     Indication: MULTIPLE SCLEROSIS
     Route: 048
     Dates: start: 20140220
  9. AUBAGIO [Suspect]
     Active Substance: TERIFLUNOMIDE
     Indication: MULTIPLE SCLEROSIS
     Route: 048
     Dates: start: 20140220
  10. COPAXONE [Concomitant]
     Active Substance: GLATIRAMER ACETATE
     Dates: start: 20000101, end: 20140218
  11. ATENOLOL. [Concomitant]
     Active Substance: ATENOLOL
  12. OXYBUTYNIN [Concomitant]
     Active Substance: OXYBUTYNIN

REACTIONS (30)
  - Cough [Not Recovered/Not Resolved]
  - Amnesia [Unknown]
  - Depression [Unknown]
  - Sinusitis [Unknown]
  - Drug dose omission [Unknown]
  - Limb discomfort [Recovering/Resolving]
  - Fatigue [Unknown]
  - Gastrointestinal disorder [Recovered/Resolved]
  - Feeling abnormal [Unknown]
  - Peripheral swelling [Recovered/Resolved]
  - Oropharyngeal pain [Not Recovered/Not Resolved]
  - Headache [Recovered/Resolved]
  - Nausea [Not Recovered/Not Resolved]
  - Feeding disorder [Unknown]
  - Pulmonary congestion [Not Recovered/Not Resolved]
  - Hepatic steatosis [Unknown]
  - Constipation [Unknown]
  - Abdominal pain [Unknown]
  - Multiple sclerosis relapse [Recovering/Resolving]
  - Central nervous system lesion [Unknown]
  - Back pain [Recovered/Resolved]
  - Fine motor skill dysfunction [Unknown]
  - Gastric disorder [Recovered/Resolved]
  - Abdominal distension [Unknown]
  - Pallor [Unknown]
  - Erythema [Unknown]
  - Asthenia [Unknown]
  - Depressed mood [Unknown]
  - Gastroenteritis viral [Recovered/Resolved]
  - Diarrhoea [Recovered/Resolved]

NARRATIVE: CASE EVENT DATE: 201405
